FAERS Safety Report 12505649 (Version 1)
Quarter: 2016Q2

REPORT INFORMATION
  Report Type: Spontaneous
  Country: US (occurrence: US)
  Receive Date: 20160628
  Receipt Date: 20160628
  Transmission Date: 20160815
  Serious: Yes (Other)
  Sender: FDA-Public Use
  Company Number: US-AMGEN-USASP2016081395

PATIENT
  Age: 52 Year
  Sex: Female

DRUGS (8)
  1. PHILLIPS COLON HEALTH [Concomitant]
     Dosage: UNK
  2. FENOFIBRATE. [Concomitant]
     Active Substance: FENOFIBRATE
     Dosage: UNK
  3. FISH OIL [Concomitant]
     Active Substance: FISH OIL
     Dosage: UNK
  4. FOLIC ACID. [Concomitant]
     Active Substance: FOLIC ACID
     Dosage: UNK
  5. ENBREL [Suspect]
     Active Substance: ETANERCEPT
     Indication: ARTHRITIS
     Dosage: 50 MG, WEEKLY
     Route: 058
     Dates: start: 20140716
  6. METHOTREXATE [Concomitant]
     Active Substance: METHOTREXATE
     Dosage: UNK
  7. HYDROXYCHLOROQUINE [Concomitant]
     Active Substance: HYDROXYCHLOROQUINE
     Dosage: UNK
  8. MVI                                /01825701/ [Concomitant]
     Active Substance: VITAMINS

REACTIONS (1)
  - Gallbladder operation [Unknown]

NARRATIVE: CASE EVENT DATE: 2016
